FAERS Safety Report 9973498 (Version 1)
Quarter: 2014Q1

REPORT INFORMATION
  Report Type: Spontaneous
  Country: US (occurrence: None)
  Receive Date: 20140128
  Receipt Date: 20140128
  Transmission Date: 20141002
  Serious: Yes (Hospitalization, Other)
  Sender: FDA-Public Use
  Company Number: A-US2013-79265

PATIENT
  Age: 74 Year
  Sex: Male
  Weight: 136.1 kg

DRUGS (13)
  1. TRACLEER [Suspect]
     Indication: PULMONARY ARTERIAL HYPERTENSION
     Route: 048
     Dates: start: 20121218, end: 20130531
  2. REVATIO (SILDENAFIL CITRATE) [Concomitant]
  3. OXYGEN (OXYGEN) [Concomitant]
  4. EFFEXOR (VENLAFAXINE HYDROCHLORIDE) UNKNOWN [Concomitant]
  5. FENOFIBRATE (FENOFIBRATE) (FENOFIBRATE) [Concomitant]
  6. ASPIRIN (ACETYLSALICYLIC ACID) [Concomitant]
  7. LIPTOR (ATORVASTATIN) [Concomitant]
  8. COZAAR (LOSARTAN POTASSIUM) (50 MILLIGRAM, TABLETS) (LOSARTAN POTASSIUM) [Concomitant]
  9. LANTUS (INSULIN GLARGINE) [Concomitant]
  10. NOVOLOG (INSULIN ASPART) [Concomitant]
  11. SOTALOL (SOTALOL) [Concomitant]
  12. DEXLANSOPRAZOLE (DEXLANSOPRAZOLE) [Concomitant]
  13. COUMADIN (WARFARIN SODIUM) [Concomitant]

REACTIONS (7)
  - Dyspnoea [None]
  - Oxygen saturation decreased [None]
  - Oedema peripheral [None]
  - Cardiac failure congestive [None]
  - Fluid retention [None]
  - Condition aggravated [None]
  - Malaise [None]
